FAERS Safety Report 11708587 (Version 1)
Quarter: 2015Q4

REPORT INFORMATION
  Report Type: Spontaneous
  Country: US (occurrence: US)
  Receive Date: 20151104
  Receipt Date: 20151104
  Transmission Date: 20160304
  Serious: No
  Sender: FDA-Public Use
  Company Number: US-ELI_LILLY_AND_COMPANY-US201107002482

PATIENT
  Age: 68 Year
  Sex: Female

DRUGS (2)
  1. FORTEO [Suspect]
     Active Substance: TERIPARATIDE
     Indication: OSTEOPOROSIS
     Dosage: UNK, QD
     Dates: start: 201105
  2. FORTEO [Suspect]
     Active Substance: TERIPARATIDE
     Dosage: 20 UG, QD

REACTIONS (8)
  - Injection site erythema [Unknown]
  - Injection site haematoma [Unknown]
  - Erythema [Recovered/Resolved]
  - Injection site pain [Unknown]
  - Dry mouth [Not Recovered/Not Resolved]
  - Burning sensation [Unknown]
  - Feeling hot [Unknown]
  - Pain in extremity [Unknown]

NARRATIVE: CASE EVENT DATE: 201106
